FAERS Safety Report 24155979 (Version 5)
Quarter: 2025Q1

REPORT INFORMATION
  Report Type: Spontaneous
  Country: MX (occurrence: MX)
  Receive Date: 20240731
  Receipt Date: 20250129
  Transmission Date: 20250409
  Serious: Yes (Death, Hospitalization)
  Sender: BIOGEN
  Company Number: MX-BIOGEN-2024BI01275930

PATIENT
  Age: 27 Year
  Sex: Female

DRUGS (1)
  1. TYSABRI [Suspect]
     Active Substance: NATALIZUMAB
     Indication: Multiple sclerosis
     Route: 050
     Dates: start: 20200911

REACTIONS (3)
  - Death [Fatal]
  - Multiple sclerosis relapse [Not Recovered/Not Resolved]
  - Progressive multifocal leukoencephalopathy [Not Recovered/Not Resolved]

NARRATIVE: CASE EVENT DATE: 20240721
